FAERS Safety Report 4918615-0 (Version None)
Quarter: 2006Q1

REPORT INFORMATION
  Report Type: 
  Country: None (occurrence: None)
  Receive Date: 20060221
  Receipt Date: 20060221
  Transmission Date: 20060701
  Serious: Yes (Other)
  Sender: FDA-Public Use
  Company Number: None

PATIENT
  Age: 39 Year
  Sex: Female
  Weight: 58.9676 kg

DRUGS (2)
  1. ZOSYN [Suspect]
     Indication: SOFT TISSUE INFECTION
     Dosage: 2.5GM  Q6H  IV DRIP
     Route: 041
     Dates: start: 20051230, end: 20060203
  2. VANCOMYCIN [Suspect]
     Indication: SOFT TISSUE INFECTION
     Dosage: 1GM Q36H IV DRIP
     Route: 041
     Dates: start: 20051230, end: 20060203

REACTIONS (1)
  - STEVENS-JOHNSON SYNDROME [None]
